FAERS Safety Report 7743322-9 (Version None)
Quarter: 2011Q3

REPORT INFORMATION
  Report Type: 
  Country: None (occurrence: None)
  Receive Date: 20110909
  Receipt Date: 20110909
  Transmission Date: 20111222
  Serious: No
  Sender: FDA-Public Use
  Company Number: None

PATIENT
  Age: 11 Year
  Sex: Male
  Weight: 45 kg

DRUGS (2)
  1. PALIPERIDONE [Suspect]
     Indication: AFFECTIVE DISORDER
     Dosage: PALIPERIDONE 12MG DAILY ORAL
     Route: 048
     Dates: start: 20110301, end: 20110701
  2. QUETIAPINE [Suspect]
     Indication: AFFECTIVE DISORDER
     Dosage: 400MG
     Route: 048
     Dates: start: 20110301, end: 20110701

REACTIONS (1)
  - OCULOGYRIC CRISIS [None]
